FAERS Safety Report 22331377 (Version 1)
Quarter: 2023Q2

REPORT INFORMATION
  Report Type: Spontaneous
  Country: US (occurrence: US)
  Receive Date: 20230517
  Receipt Date: 20230517
  Transmission Date: 20230722
  Serious: Yes (Other)
  Sender: FDA-Public Use
  Company Number: US-GLAXOSMITHKLINE-US2023069256

PATIENT

DRUGS (2)
  1. NUCALA [Suspect]
     Active Substance: MEPOLIZUMAB
     Indication: Hypereosinophilic syndrome
     Dosage: 100 MG AUTOENJECTOR.
     Dates: start: 20211102
  2. CAPLYTA [Concomitant]
     Active Substance: LUMATEPERONE
     Indication: Depressed mood
     Dosage: UNK
     Dates: start: 20220430

REACTIONS (2)
  - Haemorrhage [Not Recovered/Not Resolved]
  - Urinary tract infection [Not Recovered/Not Resolved]
